FAERS Safety Report 24738888 (Version 3)
Quarter: 2025Q1

REPORT INFORMATION
  Report Type: Report from Study
  Country: US (occurrence: US)
  Receive Date: 20241216
  Receipt Date: 20250116
  Transmission Date: 20250409
  Serious: Yes (Congenital Anomaly, Other)
  Sender: GILEAD
  Company Number: US-GILEAD-2024-0696131

PATIENT
  Age: 0 Year
  Sex: Female
  Weight: 1.25 kg

DRUGS (2)
  1. BICTEGRAVIR\EMTRICITABINE\TENOFOVIR ALAFENAMIDE [Suspect]
     Active Substance: BICTEGRAVIR\EMTRICITABINE\TENOFOVIR ALAFENAMIDE
     Indication: HIV infection
     Dosage: 1 DOSAGE FORM, QD
     Route: 064
     Dates: start: 20230614
  2. EMTRICITABINE\TENOFOVIR DISOPROXIL FUMARATE [Suspect]
     Active Substance: EMTRICITABINE\TENOFOVIR DISOPROXIL FUMARATE
     Indication: HIV infection
     Dosage: 1 DOSAGE FORM, QD
     Route: 064
     Dates: start: 20230301, end: 20230614

REACTIONS (11)
  - Trisomy 4p [Unknown]
  - Gallbladder agenesis [Unknown]
  - Renal aplasia [Unknown]
  - Cerebellar hypoplasia [Unknown]
  - Pulmonary hypoplasia [Unknown]
  - Bicuspid aortic valve [Unknown]
  - Ventricular septal defect [Unknown]
  - Foot deformity [Unknown]
  - Hand deformity [Unknown]
  - Premature baby [Recovered/Resolved]
  - Foetal exposure during pregnancy [Recovered/Resolved]

NARRATIVE: CASE EVENT DATE: 20231117
